FAERS Safety Report 18334935 (Version 1)
Quarter: 2020Q4

REPORT INFORMATION
  Report Type: Spontaneous
  Country: US (occurrence: US)
  Receive Date: 20201001
  Receipt Date: 20201001
  Transmission Date: 20210113
  Serious: No
  Sender: FDA-Public Use
  Company Number: US-GW PHARMA-202009USGW03297

PATIENT

DRUGS (1)
  1. EPIDIOLEX [Suspect]
     Active Substance: CANNABIDIOL
     Indication: LENNOX-GASTAUT SYNDROME
     Dosage: 100 MILLIGRAM, BID
     Dates: start: 20200901

REACTIONS (4)
  - Seizure [Unknown]
  - Incorrect route of product administration [Unknown]
  - Dehydration [Unknown]
  - Diarrhoea [Unknown]

NARRATIVE: CASE EVENT DATE: 202009
